FAERS Safety Report 12146377 (Version 2)
Quarter: 2016Q1

REPORT INFORMATION
  Report Type: Spontaneous
  Country: DE (occurrence: DE)
  Receive Date: 20160304
  Receipt Date: 20160325
  Transmission Date: 20160526
  Serious: Yes (Death)
  Sender: FDA-Public Use
  Company Number: DE-LINDE GAS NORTH AMERICA LLC-DE-LHC-2016046

PATIENT
  Sex: Male

DRUGS (1)
  1. CONOXIA [Suspect]
     Active Substance: OXYGEN
     Indication: PALLIATIVE CARE

REACTIONS (2)
  - Incorrect drug administration rate [Fatal]
  - Device failure [Fatal]

NARRATIVE: CASE EVENT DATE: 20160227
